FAERS Safety Report 4950786-2 (Version None)
Quarter: 2006Q1

REPORT INFORMATION
  Report Type: 
  Country: None (occurrence: None)
  Receive Date: 20060322
  Receipt Date: 20021101
  Transmission Date: 20060701
  Serious: Yes (Other)
  Sender: FDA-Public Use
  Company Number: DE-BRISTOL-MYERS SQUIBB COMPANY-13310222

PATIENT
  Age: 44 Year
  Sex: Male
  Weight: 70 kg

DRUGS (11)
  1. ATAZANAVIR [Suspect]
     Indication: HIV INFECTION
     Dosage: 2X1
  2. SUSTIVA [Suspect]
     Indication: HIV INFECTION
     Dosage: 1X3
     Dates: start: 20000801
  3. VIDEX [Suspect]
     Indication: HIV INFECTION
     Dosage: 1X1
  4. ZERIT [Suspect]
     Indication: HIV INFECTION
     Dosage: 2X1
     Dates: start: 20010201
  5. KALETRA [Suspect]
     Indication: HIV INFECTION
     Dosage: 2X3
     Dates: start: 20010101
  6. RETROVIR [Suspect]
     Indication: HIV INFECTION
     Dosage: 2X1
     Dates: start: 20011101
  7. ZIAGEN [Suspect]
     Indication: HIV INFECTION
     Dosage: 2X1
     Dates: start: 20010101
  8. CRIXIVAN [Suspect]
     Indication: HIV INFECTION
     Dosage: 1X3
     Dates: start: 20020501
  9. VIREAD [Suspect]
     Indication: HIV INFECTION
     Dosage: 1X1
  10. NORVIR [Suspect]
     Indication: HIV INFECTION
     Dosage: 2X1
  11. EPIVIR [Suspect]
     Indication: HIV INFECTION
     Dosage: 1X1

REACTIONS (15)
  - ACUTE MYOCARDIAL INFARCTION [None]
  - CORONARY ARTERY DISEASE [None]
  - CORONARY ARTERY STENOSIS [None]
  - DIARRHOEA [None]
  - GOITRE [None]
  - HERPES SIMPLEX [None]
  - HYPOKALAEMIA [None]
  - HYPOTHYROIDISM [None]
  - KAPOSI'S SARCOMA [None]
  - LEUKOPENIA [None]
  - MYOCARDIAL INFARCTION [None]
  - OESOPHAGEAL CANDIDIASIS [None]
  - OPPORTUNISTIC INFECTION [None]
  - PSORIASIS [None]
  - THROMBOCYTOPENIA [None]
